FAERS Safety Report 9213348 (Version 5)
Quarter: 2013Q4

REPORT INFORMATION
  Report Type: Report from Study
  Country: US (occurrence: US)
  Receive Date: 20130405
  Receipt Date: 20131030
  Transmission Date: 20140711
  Serious: Yes (Disabling, Other)
  Sender: FDA-Public Use
  Company Number: PHEH2013US007751

PATIENT
  Sex: Female

DRUGS (3)
  1. EXTAVIA [Suspect]
     Indication: MULTIPLE SCLEROSIS
     Dosage: 0.063 MG, QOD
     Route: 058
     Dates: start: 20130327
  2. EXTAVIA [Suspect]
     Dosage: 0.25 MG, QOD
     Route: 058
     Dates: start: 20130402
  3. COPAXONE [Concomitant]
     Dosage: UNK UKN, UNK

REACTIONS (8)
  - Hypokinesia [Not Recovered/Not Resolved]
  - Visual acuity reduced [Not Recovered/Not Resolved]
  - Choking [Recovering/Resolving]
  - Activities of daily living impaired [Not Recovered/Not Resolved]
  - Crying [Recovering/Resolving]
  - Asthenia [Recovering/Resolving]
  - Fatigue [Not Recovered/Not Resolved]
  - Injection site pain [Recovering/Resolving]
